FAERS Safety Report 17263568 (Version 2)
Quarter: 2020Q1

REPORT INFORMATION
  Report Type: Spontaneous
  Country: DE (occurrence: DE)
  Receive Date: 20200113
  Receipt Date: 20200130
  Transmission Date: 20200409
  Serious: No
  Sender: FDA-Public Use
  Company Number: DE-GW PHARMA-201912DEGW4636

PATIENT

DRUGS (2)
  1. EPIDIOLEX [Suspect]
     Active Substance: CANNABIDIOL
     Indication: EPILEPSY
     Dosage: 200 MILLIGRAM, BID (2 ML IN THE MORNING, 2 ML IN THE EVENING)
     Route: 048
     Dates: start: 20191106, end: 20191204
  2. EPIDIOLEX [Suspect]
     Active Substance: CANNABIDIOL
     Dosage: 100 MILLIGRAM, BID (1 ML IN THE MORNING, 1 ML IN THE EVENING)
     Route: 048
     Dates: start: 20191211

REACTIONS (5)
  - Personality change [Recovering/Resolving]
  - Somnolence [Unknown]
  - Psychotic disorder [Unknown]
  - Aggression [Recovering/Resolving]
  - Incorrect dose administered [Recovered/Resolved]

NARRATIVE: CASE EVENT DATE: 201911
